FAERS Safety Report 11255708 (Version 1)
Quarter: 2015Q3

REPORT INFORMATION
  Report Type: Spontaneous
  Country: AU (occurrence: AU)
  Receive Date: 20150709
  Receipt Date: 20150709
  Transmission Date: 20151125
  Serious: Yes (Other)
  Sender: FDA-Public Use
  Company Number: AU-GUERBET LLC-1040438

PATIENT
  Age: 46 Year
  Sex: Female

DRUGS (1)
  1. HEXABRIX [Suspect]
     Active Substance: IOXAGLATE MEGLUMINE\IOXAGLATE SODIUM

REACTIONS (3)
  - Laryngitis [Unknown]
  - Flushing [Unknown]
  - Angioedema [Unknown]
